FAERS Safety Report 9697851 (Version 5)
Quarter: 2017Q3

REPORT INFORMATION
  Report Type: Spontaneous
  Country: US (occurrence: US)
  Receive Date: 20131120
  Receipt Date: 20170929
  Transmission Date: 20171128
  Serious: Yes (Hospitalization, Other)
  Sender: FDA-Public Use
  Company Number: US-009507513-1311USA005718

PATIENT
  Sex: Female

DRUGS (3)
  1. ALENDRONATE SODIUM. [Suspect]
     Active Substance: ALENDRONATE SODIUM
     Indication: OSTEOPOROSIS PROPHYLAXIS
     Dosage: 70 MG, QW
     Route: 048
     Dates: start: 20080229, end: 200806
  2. FOSAMAX [Suspect]
     Active Substance: ALENDRONATE SODIUM
     Indication: OSTEOPENIA
     Dosage: 70 MG, QW
     Route: 048
     Dates: start: 20020730, end: 20080201
  3. FOSAMAX [Suspect]
     Active Substance: ALENDRONATE SODIUM
     Indication: OSTEOPOROSIS PROPHYLAXIS

REACTIONS (20)
  - Ankle fracture [Unknown]
  - Femur fracture [Recovered/Resolved]
  - Limb discomfort [Unknown]
  - Device breakage [Unknown]
  - Fall [Unknown]
  - Femur fracture [Recovering/Resolving]
  - Joint dislocation [Unknown]
  - Fracture delayed union [Unknown]
  - Device loosening [Unknown]
  - Device dislocation [Unknown]
  - Femur fracture [Unknown]
  - Hypertension [Unknown]
  - Fall [Unknown]
  - Device breakage [Unknown]
  - Shoulder arthroplasty [Unknown]
  - Atypical femur fracture [Unknown]
  - Skin abrasion [Unknown]
  - Humerus fracture [Unknown]
  - Fracture nonunion [Unknown]
  - Anaemia postoperative [Unknown]

NARRATIVE: CASE EVENT DATE: 2007
